FAERS Safety Report 12076301 (Version 1)
Quarter: 2016Q1

REPORT INFORMATION
  Report Type: Report from Study
  Country: TR (occurrence: TR)
  Receive Date: 20160215
  Receipt Date: 20160215
  Transmission Date: 20160526
  Serious: Yes (Hospitalization)
  Sender: FDA-Public Use
  Company Number: TR-BAUSCH-BL-2016-003599

PATIENT
  Age: 72 Year
  Sex: Male

DRUGS (1)
  1. CARTELOL [Suspect]
     Active Substance: CARTEOLOL HYDROCHLORIDE
     Indication: GLAUCOMA
     Route: 065

REACTIONS (1)
  - Atrioventricular block complete [Recovered/Resolved]
